FAERS Safety Report 4920370-5 (Version None)
Quarter: 2006Q1

REPORT INFORMATION
  Report Type: 
  Country: None (occurrence: None)
  Receive Date: 20060223
  Receipt Date: 20050912
  Transmission Date: 20060701
  Serious: Yes (Other)
  Sender: FDA-Public Use
  Company Number: US-MERCK-0509USA01864

PATIENT
  Sex: Male

DRUGS (1)
  1. VIOXX [Suspect]
     Route: 048
     Dates: start: 20000714, end: 20021126

REACTIONS (7)
  - ACUTE CORONARY SYNDROME [None]
  - ASTHENIA [None]
  - BACK PAIN [None]
  - CHEST PAIN [None]
  - CORONARY ARTERY THROMBOSIS [None]
  - DEPRESSION [None]
  - PAIN IN EXTREMITY [None]
